FAERS Safety Report 24351579 (Version 1)
Quarter: 2024Q3

REPORT INFORMATION
  Report Type: Report from Study
  Country: PT (occurrence: PT)
  Receive Date: 20240923
  Receipt Date: 20240923
  Transmission Date: 20241017
  Serious: No
  Sender: ROCHE
  Company Number: PT-ROCHE-3555522

PATIENT
  Age: 38 Year
  Sex: Female
  Weight: 52.3 kg

DRUGS (23)
  1. HERCEPTIN [Suspect]
     Active Substance: TRASTUZUMAB
     Indication: HER2 positive breast cancer
     Dosage: DATE OF MOST RECENT DOSE: 07/FEB/2017
     Route: 042
     Dates: start: 20160801, end: 20181120
  2. PERJETA [Suspect]
     Active Substance: PERTUZUMAB
     Indication: HER2 positive breast cancer
     Route: 042
     Dates: start: 20160913, end: 20181120
  3. TAXOTERE [Suspect]
     Active Substance: DOCETAXEL
     Indication: HER2 positive breast cancer
     Dosage: MOST RECENT DOSE PRIOR TO THE EVENT: 04/OCT/2016
     Route: 042
     Dates: start: 20160802
  4. TAXOTERE [Suspect]
     Active Substance: DOCETAXEL
     Route: 042
     Dates: start: 20161004, end: 20161025
  5. ARCOXIA [Concomitant]
     Active Substance: ETORICOXIB
     Dates: start: 20160831
  6. FUSIDATE SODIUM [Concomitant]
     Active Substance: FUSIDATE SODIUM
     Dosage: ONGOING = CHECKED
  7. TRAMADOL [Concomitant]
     Active Substance: TRAMADOL\TRAMADOL HYDROCHLORIDE
     Dates: start: 20160831
  8. CLOTRIMAZOLE [Concomitant]
     Active Substance: CLOTRIMAZOLE
     Dates: start: 20170816
  9. ZYRTEC (PORTUGAL) [Concomitant]
     Dates: start: 20170301
  10. CICLOPIROX [Concomitant]
     Active Substance: CICLOPIROX
     Dates: start: 20170503
  11. DIAZEPAM [Concomitant]
     Active Substance: DIAZEPAM
     Dates: start: 20180403
  12. MIRTAZAPINE [Concomitant]
     Active Substance: MIRTAZAPINE
     Dates: start: 20180403
  13. FLUCLOXACILLIN [Concomitant]
     Active Substance: FLUCLOXACILLIN
     Dates: start: 20180612
  14. IRON [Concomitant]
     Active Substance: IRON
  15. FOLIC ACID [Concomitant]
     Active Substance: FOLIC ACID
     Dates: start: 20180905
  16. IBUPROFEN [Concomitant]
     Active Substance: IBUPROFEN
  17. TANTUM [Concomitant]
     Active Substance: BENZYDAMINE HYDROCHLORIDE
     Dates: start: 20170816
  18. BENZOYL PEROXIDE [Concomitant]
     Active Substance: BENZOYL PEROXIDE
     Dates: start: 20170503
  19. BETAMETHASONE VALERATE\FUSIDIC ACID [Concomitant]
     Active Substance: BETAMETHASONE VALERATE\FUSIDIC ACID
     Dates: start: 20170503
  20. DOXYCYCLINE [Concomitant]
     Active Substance: DOXYCYCLINE\DOXYCYCLINE HYCLATE
     Dates: start: 20170503
  21. ISOTRETINOIN [Concomitant]
     Active Substance: ISOTRETINOIN
     Indication: Prophylaxis
     Dates: start: 20210204
  22. ONDANSETRON [Concomitant]
     Active Substance: ONDANSETRON
     Indication: Pain
     Route: 048
     Dates: start: 20210219, end: 20210219
  23. TRAMADOL [Concomitant]
     Active Substance: TRAMADOL\TRAMADOL HYDROCHLORIDE
     Indication: Pain
     Route: 048
     Dates: start: 20210219, end: 20210219

REACTIONS (1)
  - Rash pustular [Recovered/Resolved]

NARRATIVE: CASE EVENT DATE: 20181031
